FAERS Safety Report 5672296-X (Version None)
Quarter: 2008Q1

REPORT INFORMATION
  Report Type: 
  Country: None (occurrence: None)
  Receive Date: 20080319
  Receipt Date: 20080312
  Transmission Date: 20080703
  Serious: Yes (Hospitalization)
  Sender: FDA-Public Use
  Company Number: PHHY2008JP01041

PATIENT
  Age: 58 Year
  Sex: Male

DRUGS (5)
  1. PANALDINE [Suspect]
     Dates: start: 20071214, end: 20080116
  2. ASPIRIN [Concomitant]
     Dosage: UNK, UNK
     Dates: start: 20071214
  3. TAKEPRON [Concomitant]
     Route: 048
     Dates: start: 20071214
  4. FLUVASTATIN [Suspect]
     Route: 048
     Dates: start: 20071221
  5. DIOVAN [Suspect]
     Route: 048
     Dates: start: 20071216

REACTIONS (1)
  - NEUTROPHIL COUNT DECREASED [None]
